FAERS Safety Report 25944324 (Version 2)
Quarter: 2025Q4

REPORT INFORMATION
  Report Type: Spontaneous
  Country: US (occurrence: US)
  Receive Date: 20251021
  Receipt Date: 20251218
  Transmission Date: 20260117
  Serious: No
  Sender: CIPLA
  Company Number: US-CIPLA LTD.-2025US12756

PATIENT

DRUGS (7)
  1. ALBUTEROL [Suspect]
     Active Substance: ALBUTEROL
     Indication: Asthma
     Dosage: 180 MICROGRAM, PRN (2 PUFFS AS NEEDED)
     Route: 065
     Dates: start: 2015
  2. ALBUTEROL [Suspect]
     Active Substance: ALBUTEROL
     Dosage: 180 MICROGRAM, PRN (2 PUFFS AS NEEDED)
     Route: 065
     Dates: start: 20250524, end: 2025
  3. ALBUTEROL [Suspect]
     Active Substance: ALBUTEROL
     Dosage: 180 MICROGRAM, PRN (2 PUFFS AS NEEDED, NEW INHALER)
     Route: 065
     Dates: start: 2025
  4. AMLODIPINE [Concomitant]
     Active Substance: AMLODIPINE BESYLATE
     Indication: Hypertension
     Dosage: 10 MILLIGRAM, QD (1 TAB ONCE A DAY)
     Route: 065
  5. HYDROCHLOROTHIAZIDE [Concomitant]
     Active Substance: HYDROCHLOROTHIAZIDE
     Indication: Hypertension
     Dosage: 25 MILLIGRAM, QD (1 TAB ONCE A DAY)
     Route: 065
  6. LOSARTAN POTASSIUM [Concomitant]
     Active Substance: LOSARTAN POTASSIUM
     Indication: Hypertension
     Dosage: 25 MILLIGRAM, QD (1 TAB ONCE A DAY)
     Route: 065
  7. ADVAIR HFA [Concomitant]
     Active Substance: FLUTICASONE PROPIONATE\SALMETEROL XINAFOATE
     Indication: Chronic obstructive pulmonary disease
     Dosage: 2 DOSAGE FORM, BID (2 PUFFS TWICE A DAY (TWICE IN THE MORNING AND TWICE AT NIGHT)
     Route: 065

REACTIONS (7)
  - Asthma [Unknown]
  - Feeling jittery [Recovered/Resolved]
  - Drug dose omission by device [Unknown]
  - Device delivery system issue [Unknown]
  - Device mechanical issue [Unknown]
  - Product quality issue [Unknown]
  - Tremor [Unknown]

NARRATIVE: CASE EVENT DATE: 20250101
